FAERS Safety Report 4585601-2 (Version None)
Quarter: 2005Q1

REPORT INFORMATION
  Report Type: 
  Country: None (occurrence: None)
  Receive Date: 20050214
  Receipt Date: 20050203
  Transmission Date: 20050727
  Serious: Yes (Death)
  Sender: FDA-Public Use
  Company Number: 2005024931

PATIENT
  Age: 52 Year
  Sex: Male

DRUGS (4)
  1. ZYVOX [Suspect]
     Indication: PNEUMONIA
     Dosage: 1200 MG (600 MG, BID), INTRAVENOUS
     Route: 042
     Dates: start: 20050131, end: 20050201
  2. TIENAM (CILASTATIN, IMIPENEM) [Concomitant]
  3. FLUCONAZOLE [Concomitant]
  4. UNACID (AMPICILLIN SODIUM, SULBACTAM SODIUM) [Concomitant]

REACTIONS (1)
  - DEATH [None]
